FAERS Safety Report 16153942 (Version 4)
Quarter: 2021Q1

REPORT INFORMATION
  Report Type: Spontaneous
  Country: US (occurrence: US)
  Receive Date: 20190403
  Receipt Date: 20210315
  Transmission Date: 20210419
  Serious: No
  Sender: FDA-Public Use
  Company Number: US-PFIZER INC-2019141368

PATIENT
  Age: 67 Year
  Sex: Female

DRUGS (2)
  1. VASELINE [PARAFFIN] [Suspect]
     Active Substance: PARAFFIN
     Dosage: UNK
  2. EUCRISA [Suspect]
     Active Substance: CRISABOROLE
     Indication: DERMATITIS ATOPIC
     Dosage: 2%, 2X/DAY (APPLY TO AFFECTED AREAS TWICE DAILY WITH VASELINE)

REACTIONS (1)
  - Application site pain [Recovering/Resolving]
